FAERS Safety Report 11796353 (Version 3)
Quarter: 2015Q4

REPORT INFORMATION
  Report Type: Spontaneous
  Country: US (occurrence: US)
  Receive Date: 20151203
  Receipt Date: 20151214
  Transmission Date: 20160305
  Serious: No
  Sender: FDA-Public Use
  Company Number: US-PFIZER INC-2015420351

PATIENT
  Age: 55 Year
  Sex: Female
  Weight: 66.68 kg

DRUGS (1)
  1. CELEBREX [Suspect]
     Active Substance: CELECOXIB
     Indication: BACK PAIN
     Dosage: 200 MG CAPSULE - ONLY TOOK ONE PILL
     Route: 048
     Dates: start: 20151102, end: 20151102

REACTIONS (3)
  - Drug ineffective [Unknown]
  - Myalgia [Unknown]
  - Neuralgia [Unknown]
